FAERS Safety Report 17295093 (Version 2)
Quarter: 2021Q1

REPORT INFORMATION
  Report Type: Spontaneous
  Country: MX (occurrence: MX)
  Receive Date: 20200121
  Receipt Date: 20210121
  Transmission Date: 20210419
  Serious: Yes (Death)
  Sender: FDA-Public Use
  Company Number: MX-NOVOPROD-707387

PATIENT
  Age: 76 Year
  Sex: Female
  Weight: 85 kg

DRUGS (6)
  1. ERYTHROPOIETIN [Concomitant]
     Active Substance: ERYTHROPOIETIN
     Indication: PRODUCT USED FOR UNKNOWN INDICATION
  2. SAXENDA [Suspect]
     Active Substance: LIRAGLUTIDE
     Indication: GLYCOSYLATED HAEMOGLOBIN ABNORMAL
  3. MICCIL [Concomitant]
     Indication: PRODUCT USED FOR UNKNOWN INDICATION
  4. PRAZOSIN. [Concomitant]
     Active Substance: PRAZOSIN
     Indication: PRODUCT USED FOR UNKNOWN INDICATION
  5. TRESIBA [Concomitant]
     Active Substance: INSULIN DEGLUDEC
     Indication: PRODUCT USED FOR UNKNOWN INDICATION
  6. SAXENDA [Suspect]
     Active Substance: LIRAGLUTIDE
     Indication: WEIGHT CONTROL
     Dosage: 1.2 MG
     Route: 058
     Dates: start: 201910, end: 20200107

REACTIONS (2)
  - Diabetes mellitus [Fatal]
  - Crohn^s disease [Fatal]
